FAERS Safety Report 12160056 (Version 1)
Quarter: 2016Q1

REPORT INFORMATION
  Report Type: Spontaneous
  Country: US (occurrence: US)
  Receive Date: 20160308
  Receipt Date: 20160308
  Transmission Date: 20160526
  Serious: Yes (Other)
  Sender: FDA-Public Use
  Company Number: US-SA-2015SA030902

PATIENT

DRUGS (2)
  1. ALLOPURINOL. [Concomitant]
     Active Substance: ALLOPURINOL
  2. ELITEK [Suspect]
     Active Substance: RASBURICASE
     Route: 065

REACTIONS (1)
  - Anaphylactic reaction [Recovered/Resolved]
